FAERS Safety Report 6203527-5 (Version None)
Quarter: 2009Q2

REPORT INFORMATION
  Report Type: 
  Country: None (occurrence: None)
  Receive Date: 20090527
  Receipt Date: 20090521
  Transmission Date: 20091009
  Serious: Yes (Other)
  Sender: FDA-Public Use
  Company Number: US-ASTRAZENECA-2009UW13009

PATIENT
  Age: 812 Month
  Sex: Male
  Weight: 77 kg

DRUGS (2)
  1. CASODEX [Suspect]
     Indication: PROSTATE CANCER
     Route: 048
     Dates: start: 20021205, end: 20041205
  2. EXTERNAL BEAM RADIATION THERAPY [Suspect]
     Indication: PROSTATE CANCER
     Dosage: TOTAL DOSE TO DATE; 64.8 GY
     Route: 065
     Dates: start: 20021205, end: 20030127

REACTIONS (1)
  - ANAL FISTULA [None]
